FAERS Safety Report 17243576 (Version 1)
Quarter: 2020Q1

REPORT INFORMATION
  Report Type: Spontaneous
  Country: US (occurrence: US)
  Receive Date: 20200107
  Receipt Date: 20200107
  Transmission Date: 20200409
  Serious: No
  Sender: FDA-Public Use
  Company Number: US-FAGRON STERILE SERVICES-2078602

PATIENT
  Age: 55 Year
  Sex: Female
  Weight: 143.18 kg

DRUGS (1)
  1. SUCCINYLCHOLINE CHLORIDE 20MG/ML INJ (API) 5ML [Suspect]
     Active Substance: SUCCINYLCHOLINE CHLORIDE
     Dates: start: 20191226, end: 20191226

REACTIONS (1)
  - Drug ineffective [Recovered/Resolved]

NARRATIVE: CASE EVENT DATE: 20191226
